FAERS Safety Report 8062357-2 (Version None)
Quarter: 2012Q1

REPORT INFORMATION
  Report Type: 
  Country: None (occurrence: None)
  Receive Date: 20120123
  Receipt Date: 20120120
  Transmission Date: 20120608
  Serious: Yes (Other)
  Sender: FDA-Public Use
  Company Number: US-PFIZER INC-2012017362

PATIENT
  Sex: Female
  Weight: 78.912 kg

DRUGS (4)
  1. CHANTIX [Suspect]
     Indication: SMOKING CESSATION THERAPY
     Dosage: 0.5 MG, DAILY
     Dates: start: 20111209
  2. PLAVIX [Concomitant]
     Indication: CEREBROVASCULAR ACCIDENT PROPHYLAXIS
     Dosage: 75 MG, DAILY
  3. METFORMIN [Concomitant]
     Dosage: 1000 MG, 2X/DAY
  4. INSULIN [Concomitant]
     Indication: DIABETES MELLITUS
     Dosage: 25 IU, DAILY

REACTIONS (7)
  - HYPERPHAGIA [None]
  - DYSPNOEA [None]
  - WEIGHT INCREASED [None]
  - MIDDLE INSOMNIA [None]
  - DEPRESSED MOOD [None]
  - ANGER [None]
  - ABNORMAL BEHAVIOUR [None]
